FAERS Safety Report 21055913 (Version 1)
Quarter: 2022Q3

REPORT INFORMATION
  Report Type: Report from Study
  Country: CA (occurrence: CA)
  Receive Date: 20220708
  Receipt Date: 20220708
  Transmission Date: 20221026
  Serious: Yes (Other)
  Sender: FDA-Public Use
  Company Number: CA-BRISTOL-MYERS SQUIBB COMPANY-2022-066772

PATIENT
  Age: 75 Year
  Sex: Female

DRUGS (20)
  1. ORENCIA [Suspect]
     Active Substance: ABATACEPT
     Indication: Rheumatoid arthritis
     Dosage: 1 WEEK
     Route: 058
     Dates: start: 20220615
  2. GLUCOSAMINE SULFATE [Concomitant]
     Active Substance: GLUCOSAMINE SULFATE
  3. CETIRIZINE HYDROCHLORIDE [Concomitant]
     Active Substance: CETIRIZINE HYDROCHLORIDE
  4. CELLCEPT [Concomitant]
     Active Substance: MYCOPHENOLATE MOFETIL
  5. LANSOPRAZOLE [Concomitant]
     Active Substance: LANSOPRAZOLE
  6. TYLENOL [Concomitant]
     Active Substance: ACETAMINOPHEN
     Indication: Arthritis
  7. PEPCID AC [Concomitant]
     Active Substance: FAMOTIDINE
  8. ADVIL [Concomitant]
     Active Substance: IBUPROFEN
     Indication: Arthritis
  9. PREGABALIN [Concomitant]
     Active Substance: PREGABALIN
  10. VITAMIN D3 [Concomitant]
     Active Substance: CHOLECALCIFEROL
  11. MAGNESIUM [Concomitant]
     Active Substance: MAGNESIUM
  12. LUTEIN [TAGETES SPP.] [Concomitant]
  13. FISH OIL [Concomitant]
     Active Substance: FISH OIL
  14. VITAMINS [Concomitant]
     Active Substance: VITAMINS
  15. PROBIOTIC [BIFIDOBACTERIUM INFANTIS;LACTOBACILLUS ACIDOPHILUS] [Concomitant]
  16. BIOTIN [Concomitant]
     Active Substance: BIOTIN
  17. VITAMIN B12 [Concomitant]
     Active Substance: CYANOCOBALAMIN
  18. EVENING PRIMROSE OIL [OENOTHERA BIENNIS] [Concomitant]
  19. VITAMIN C [Concomitant]
     Active Substance: ASCORBIC ACID
  20. UNSPECIFIED INGREDIENT [Concomitant]
     Active Substance: UNSPECIFIED INGREDIENT

REACTIONS (3)
  - Weight increased [Unknown]
  - Arthropathy [Unknown]
  - Scleroderma [Unknown]

NARRATIVE: CASE EVENT DATE: 20220101
